FAERS Safety Report 23523689 (Version 1)
Quarter: 2024Q1

REPORT INFORMATION
  Report Type: Spontaneous
  Country: DE (occurrence: DE)
  Receive Date: 20240214
  Receipt Date: 20240214
  Transmission Date: 20240409
  Serious: Yes (Other)
  Sender: FDA-Public Use
  Company Number: DE-EMBRYOTOX-202205298-A

PATIENT
  Age: 1 Day
  Sex: Male
  Weight: 1.05 kg

DRUGS (5)
  1. AMITRIPTYLINE [Suspect]
     Active Substance: AMITRIPTYLINE
     Indication: Obsessive-compulsive disorder
     Dosage: 200 [MG/D ] 2 SEPARATED DOSES
     Route: 064
     Dates: start: 20220321, end: 20221103
  2. ANAFRANIL [Suspect]
     Active Substance: CLOMIPRAMINE HYDROCHLORIDE
     Indication: Obsessive-compulsive disorder
     Dosage: 150 [MG/D ] 2 SEPARATED DOSES
     Route: 064
     Dates: start: 20220321, end: 20221103
  3. MIRTAZAPINE [Suspect]
     Active Substance: MIRTAZAPINE
     Indication: Obsessive-compulsive disorder
     Dosage: 45 [MG/D ]
     Route: 064
     Dates: start: 20220321, end: 20221103
  4. BOOSTRIX [Concomitant]
     Active Substance: TETANUS TOXOID, REDUCED DIPHTHERIA TOXOID AND ACELLULAR PERTUSSIS VACCINE, ADSORBED ANTIGENS
     Indication: Immunisation
     Dosage: UNK
     Route: 064
     Dates: start: 20221013, end: 20221013
  5. LEVOTHYROXINE SODIUM [Concomitant]
     Active Substance: LEVOTHYROXINE SODIUM
     Indication: Hypothyroidism
     Dosage: 100 [?G/D ]
     Route: 064
     Dates: start: 20220321, end: 20221103

REACTIONS (2)
  - Small for dates baby [Not Recovered/Not Resolved]
  - Foetal exposure during pregnancy [Unknown]

NARRATIVE: CASE EVENT DATE: 20221101
